FAERS Safety Report 17223827 (Version 1)
Quarter: 2020Q1

REPORT INFORMATION
  Report Type: Spontaneous
  Country: US (occurrence: US)
  Receive Date: 20200102
  Receipt Date: 20200102
  Transmission Date: 20200409
  Serious: Yes (Life-Threatening, Hospitalization, Other)
  Sender: FDA-Public Use
  Company Number: US-TORRENT-00009582

PATIENT
  Age: 37 Year
  Sex: Male
  Weight: 131 kg

DRUGS (2)
  1. BUSPIRONE [Concomitant]
     Active Substance: BUSPIRONE HYDROCHLORIDE
     Indication: PRODUCT USED FOR UNKNOWN INDICATION
     Dates: start: 2007
  2. VENLAFAXINE [Suspect]
     Active Substance: VENLAFAXINE HYDROCHLORIDE
     Indication: PRODUCT USED FOR UNKNOWN INDICATION
     Dates: start: 2007, end: 2013

REACTIONS (11)
  - Toxicity to various agents [Recovered/Resolved]
  - Pleural effusion [Recovered/Resolved]
  - Cardiac failure acute [Recovered/Resolved]
  - Hypertensive urgency [Recovered/Resolved]
  - Pneumonitis [Recovered/Resolved]
  - Fluid retention [Recovered/Resolved]
  - Tricuspid valve incompetence [Recovered/Resolved]
  - Drug level increased [Recovered/Resolved]
  - Mitral valve incompetence [Recovered/Resolved]
  - Gastrointestinal oedema [Recovered/Resolved]
  - Congestive cardiomyopathy [Recovered/Resolved]

NARRATIVE: CASE EVENT DATE: 2013
